FAERS Safety Report 13767663 (Version 1)
Quarter: 2017Q3

REPORT INFORMATION
  Report Type: Spontaneous
  Country: DE (occurrence: DE)
  Receive Date: 20170719
  Receipt Date: 20170719
  Transmission Date: 20171127
  Serious: Yes (Hospitalization, Other)
  Sender: FDA-Public Use
  Company Number: DE-PFIZER INC-2017306517

PATIENT
  Age: 78 Year
  Sex: Female

DRUGS (8)
  1. ASPIRIN. [Concomitant]
     Active Substance: ASPIRIN
     Indication: PROPHYLAXIS
     Dosage: LONG-TERM TREATMENT
     Route: 048
  2. PANTOZOL [Concomitant]
     Active Substance: PANTOPRAZOLE SODIUM
     Route: 048
  3. PREGABALIN. [Suspect]
     Active Substance: PREGABALIN
     Indication: PAIN
     Dosage: 75 MG, 2X/DAY, LONG-TERM TREATMENT
     Route: 048
  4. METOPROLOL. [Concomitant]
     Active Substance: METOPROLOL
     Dosage: 47.5 UNK, UNK
     Route: 048
  5. XIPAMIDE [Concomitant]
     Active Substance: XIPAMIDE
     Dosage: LONG-TERM TREATMENT
     Route: 048
  6. MACROGOL [Concomitant]
     Active Substance: POLYETHYLENE GLYCOLS
     Indication: CONSTIPATION
     Dosage: LONG-TERM TREATMENT
     Route: 048
  7. OXYCODONE [Interacting]
     Active Substance: OXYCODONE
     Indication: PAIN
     Dosage: 10 MG, 2X/DAY LONG-TERM TREATMENT
     Route: 048
  8. ALENDRONIC ACID [Concomitant]
     Active Substance: ALENDRONIC ACID
     Dosage: LONG-TERM TREATMENT
     Route: 048

REACTIONS (8)
  - Radial nerve palsy [Unknown]
  - Hypoglycaemia [Unknown]
  - Overdose [Unknown]
  - Renal impairment [Unknown]
  - Hypotension [Unknown]
  - Disease recurrence [Unknown]
  - Drug interaction [Unknown]
  - Vomiting [Unknown]

NARRATIVE: CASE EVENT DATE: 20170607
